FAERS Safety Report 10159972 (Version 1)
Quarter: 2014Q2

REPORT INFORMATION
  Report Type: Spontaneous
  Country: US (occurrence: US)
  Receive Date: 20140508
  Receipt Date: 20140508
  Transmission Date: 20141212
  Serious: No
  Sender: FDA-Public Use
  Company Number: US-GLAXOSMITHKLINE-A1047150A

PATIENT
  Sex: Female

DRUGS (7)
  1. TYKERB [Suspect]
     Indication: BREAST CANCER
     Dosage: 250TAB PER DAY
     Route: 048
     Dates: start: 20131014, end: 20131017
  2. HERCEPTIN [Concomitant]
  3. LETROZOLE [Concomitant]
  4. ATENOLOL [Concomitant]
  5. AMLODIPINE [Concomitant]
  6. OMEPRAZOLE [Concomitant]
  7. VITAMINS [Concomitant]

REACTIONS (1)
  - Diarrhoea [Recovered/Resolved]
